FAERS Safety Report 9835824 (Version 3)
Quarter: 2014Q2

REPORT INFORMATION
  Report Type: Report from Study
  Country: US (occurrence: US)
  Receive Date: 20140122
  Receipt Date: 20140610
  Transmission Date: 20141212
  Serious: Yes (Hospitalization, Other)
  Sender: FDA-Public Use
  Company Number: US-US-EMD SERONO, INC.-7263237

PATIENT
  Age: 63 Year
  Sex: Female

DRUGS (2)
  1. REBIF [Suspect]
     Indication: MULTIPLE SCLEROSIS
     Route: 058
     Dates: start: 20100714, end: 201308
  2. REBIF [Suspect]
     Route: 058
     Dates: start: 201309

REACTIONS (9)
  - Cellulitis staphylococcal [Unknown]
  - Kidney infection [Recovering/Resolving]
  - Urinary tract infection [Not Recovered/Not Resolved]
  - Incisional hernia [Unknown]
  - Multiple sclerosis relapse [Not Recovered/Not Resolved]
  - Vitamin B12 decreased [Not Recovered/Not Resolved]
  - Feeling abnormal [Unknown]
  - Anaemia [Not Recovered/Not Resolved]
  - Depression [Recovering/Resolving]
